FAERS Safety Report 4765581-7 (Version None)
Quarter: 2005Q3

REPORT INFORMATION
  Report Type: 
  Country: None (occurrence: None)
  Receive Date: 20050906
  Receipt Date: 20050823
  Transmission Date: 20060218
  Serious: Yes (Other)
  Sender: FDA-Public Use
  Company Number: 2005121535

PATIENT
  Sex: 0

DRUGS (2)
  1. DIFLUCAN [Suspect]
     Indication: FUNGAL INFECTION
     Dosage: 400 MG (UNKNOWN), ORAL
     Route: 048
     Dates: start: 20050812, end: 20050819
  2. MICAFUNGIN (MICAFUNGIN) [Concomitant]

REACTIONS (2)
  - DELIRIUM [None]
  - DEPRESSED LEVEL OF CONSCIOUSNESS [None]
